FAERS Safety Report 23144049 (Version 1)
Quarter: 2023Q4

REPORT INFORMATION
  Report Type: Spontaneous
  Country: US (occurrence: US)
  Receive Date: 20231103
  Receipt Date: 20231103
  Transmission Date: 20240110
  Serious: No
  Sender: FDA-Public Use
  Company Number: US-Covis Pharma GmbH-2023COV01726

PATIENT
  Sex: Female

DRUGS (1)
  1. ALVESCO [Suspect]
     Active Substance: CICLESONIDE
     Dosage: 2 PUFF TWICE DAILY
     Route: 055

REACTIONS (6)
  - Dyspnoea exertional [Unknown]
  - Malaise [Unknown]
  - Incorrect dose administered by device [Unknown]
  - Intentional dose omission [Unknown]
  - Product dose omission issue [Unknown]
  - Expired product administered [Unknown]
